FAERS Safety Report 17354604 (Version 1)
Quarter: 2020Q1

REPORT INFORMATION
  Report Type: Spontaneous
  Country: US (occurrence: US)
  Receive Date: 20200130
  Receipt Date: 20200130
  Transmission Date: 20200409
  Serious: Yes (Other)
  Sender: FDA-Public Use
  Company Number: None

PATIENT
  Age: 16 Year
  Sex: Male
  Weight: 60.75 kg

DRUGS (5)
  1. ALBUTEROL INHALATION [Concomitant]
     Active Substance: ALBUTEROL
  2. LEVETIRACETAM 500MG [Concomitant]
     Active Substance: LEVETIRACETAM
  3. EPIDIOLEX [Suspect]
     Active Substance: CANNABIDIOL
     Indication: EPILEPSY
     Route: 048
     Dates: start: 20200103
  4. FYCOMPA 12MG [Concomitant]
  5. POLYETHYLENE GLYCOL 3350 POWDER [Concomitant]
     Active Substance: POLYETHYLENE GLYCOL 3350

REACTIONS (2)
  - Weight decreased [None]
  - Decreased appetite [None]

NARRATIVE: CASE EVENT DATE: 20200128
